FAERS Safety Report 16708563 (Version 1)
Quarter: 2019Q3

REPORT INFORMATION
  Report Type: Report from Study
  Country: US (occurrence: US)
  Receive Date: 20190816
  Receipt Date: 20190816
  Transmission Date: 20191004
  Serious: Yes (Other)
  Sender: FDA-Public Use
  Company Number: US-ROCHE-2371291

PATIENT
  Sex: Female

DRUGS (1)
  1. ACTEMRA [Suspect]
     Active Substance: TOCILIZUMAB
     Indication: CONNECTIVE TISSUE DISORDER
     Dosage: SYRINGE
     Route: 058

REACTIONS (1)
  - Hypertrophic cardiomyopathy [Unknown]
